FAERS Safety Report 4819486-3 (Version None)
Quarter: 2005Q4

REPORT INFORMATION
  Report Type: 
  Country: None (occurrence: None)
  Receive Date: 20051031
  Receipt Date: 20050708
  Transmission Date: 20060501
  Serious: No
  Sender: FDA-Public Use
  Company Number: 2005PV000317

PATIENT
  Age: 66 Year
  Sex: Female
  Weight: 121.564 kg

DRUGS (14)
  1. SYMLIN [Suspect]
     Indication: DIABETES MELLITUS NON-INSULIN-DEPENDENT
     Dosage: 60 MCG; SC
     Route: 058
     Dates: start: 20050705
  2. GLUCOPHAGE [Concomitant]
  3. CELEBREX [Concomitant]
  4. LASIX [Concomitant]
  5. SYNTHROID [Concomitant]
  6. TENORMIN [Concomitant]
  7. NEXIUM [Concomitant]
  8. TRAVATAN [Concomitant]
  9. SPIRIVA [Concomitant]
  10. XOPENEX [Concomitant]
  11. LANTUS [Concomitant]
  12. OXYGEN [Concomitant]
  13. PRAVACHOL [Concomitant]
  14. IMDUR [Concomitant]

REACTIONS (9)
  - ABDOMINAL DISTENSION [None]
  - DIARRHOEA [None]
  - DRUG INEFFECTIVE [None]
  - FATIGUE [None]
  - HEADACHE [None]
  - INJECTION SITE PRURITUS [None]
  - LETHARGY [None]
  - MELAENA [None]
  - NAUSEA [None]
